FAERS Safety Report 24036657 (Version 2)
Quarter: 2024Q3

REPORT INFORMATION
  Report Type: Spontaneous
  Country: US (occurrence: US)
  Receive Date: 20240701
  Receipt Date: 20240927
  Transmission Date: 20241017
  Serious: Yes (Death, Hospitalization)
  Sender: DOMPE FARMACEUTICI
  Company Number: US-FARMAPROD-202406-2324

PATIENT
  Age: 79 Year
  Sex: Female
  Weight: 47.9 kg

DRUGS (22)
  1. OXERVATE [Suspect]
     Active Substance: CENEGERMIN-BKBJ
     Indication: Neurotrophic keratopathy
     Route: 047
     Dates: start: 20240423, end: 202406
  2. OXERVATE [Suspect]
     Active Substance: CENEGERMIN-BKBJ
  3. OXERVATE [Suspect]
     Active Substance: CENEGERMIN-BKBJ
  4. BYETTA [Concomitant]
     Active Substance: EXENATIDE
     Dosage: 10MCG/0.04 PEN INJECTOR
  5. KETOROLAC TROMETHAMINE [Concomitant]
     Active Substance: KETOROLAC TROMETHAMINE
  6. BUMETANIDE [Concomitant]
     Active Substance: BUMETANIDE
  7. METOPROLOL SUCCINATE [Concomitant]
     Active Substance: METOPROLOL SUCCINATE
     Dosage: 24 HOURS
  8. DICLOFENAC SODIUM [Concomitant]
     Active Substance: DICLOFENAC\DICLOFENAC SODIUM
  9. TOUJEO [Concomitant]
     Active Substance: INSULIN GLARGINE
     Dosage: INSULIN PEN
  10. EZETIMIBE [Concomitant]
     Active Substance: EZETIMIBE
  11. CARBOXYMETHYLCELLULOSE SODIUM [Concomitant]
     Active Substance: CARBOXYMETHYLCELLULOSE SODIUM
  12. POLYETHYLENE GLYCOL 3350 [Concomitant]
     Active Substance: POLYETHYLENE GLYCOL 3350
     Dosage: PACK
  13. SEVELAMER CARBONATE [Concomitant]
     Active Substance: SEVELAMER CARBONATE
  14. ONDANSETRON [Concomitant]
     Active Substance: ONDANSETRON
     Dosage: RAPDIS
  15. ESCITALOPRAM OXALATE [Concomitant]
     Active Substance: ESCITALOPRAM OXALATE
  16. MIDODRINE HYDROCHLORIDE [Concomitant]
     Active Substance: MIDODRINE HYDROCHLORIDE
  17. ACETAMINOPHEN [Concomitant]
     Active Substance: ACETAMINOPHEN
  18. PRAMIPEXOLE DIHYDROCHLORIDE [Concomitant]
     Active Substance: PRAMIPEXOLE DIHYDROCHLORIDE
  19. LISINOPRIL [Concomitant]
     Active Substance: LISINOPRIL
  20. ASPIRIN [Concomitant]
     Active Substance: ASPIRIN
  21. MAGNESIUM-VITAMIN D3-TURMERIC [Concomitant]
  22. LIPITOR [Concomitant]
     Active Substance: ATORVASTATIN CALCIUM

REACTIONS (3)
  - Death [Fatal]
  - Hip fracture [Unknown]
  - Eye pain [Unknown]

NARRATIVE: CASE EVENT DATE: 20240601
